FAERS Safety Report 18604371 (Version 3)
Quarter: 2021Q2

REPORT INFORMATION
  Report Type: Spontaneous
  Country: US (occurrence: US)
  Receive Date: 20201211
  Receipt Date: 20210617
  Transmission Date: 20210717
  Serious: No
  Sender: FDA-Public Use
  Company Number: US-GLAXOSMITHKLINE-US2020240858

PATIENT
  Sex: Male

DRUGS (6)
  1. FLOVENT HFA [Suspect]
     Active Substance: FLUTICASONE PROPIONATE
  2. FLOVENT HFA [Suspect]
     Active Substance: FLUTICASONE PROPIONATE
  3. FLOVENT HFA [Suspect]
     Active Substance: FLUTICASONE PROPIONATE
     Indication: PRODUCT USED FOR UNKNOWN INDICATION
     Dosage: UNK
  4. FLOVENT HFA [Suspect]
     Active Substance: FLUTICASONE PROPIONATE
  5. FLOVENT HFA [Suspect]
     Active Substance: FLUTICASONE PROPIONATE
     Indication: PRODUCT USED FOR UNKNOWN INDICATION
     Dosage: UNK
  6. FLOVENT HFA [Suspect]
     Active Substance: FLUTICASONE PROPIONATE
     Indication: PRODUCT USED FOR UNKNOWN INDICATION
     Dosage: 220 MCG/MG

REACTIONS (6)
  - Drug ineffective [Unknown]
  - Wrong technique in product usage process [Unknown]
  - Product complaint [Unknown]
  - Product dose omission issue [Unknown]
  - Wrong technique in device usage process [Unknown]
  - Asthma [Unknown]
